FAERS Safety Report 20430789 (Version 1)
Quarter: 2022Q1

REPORT INFORMATION
  Report Type: Spontaneous
  Country: US (occurrence: US)
  Receive Date: 20220204
  Receipt Date: 20220204
  Transmission Date: 20220423
  Serious: Yes (Other)
  Sender: FDA-Public Use
  Company Number: US-APOTEX-2022AP003030

PATIENT
  Sex: Female
  Weight: 54.9 kg

DRUGS (3)
  1. TRAZODONE HYDROCHLORIDE [Suspect]
     Active Substance: TRAZODONE HYDROCHLORIDE
     Indication: Sleep disorder
     Dosage: UNK
     Route: 065
  2. TYVASO [Suspect]
     Active Substance: TREPROSTINIL
     Indication: Pulmonary arterial hypertension
     Dosage: UNK
     Dates: start: 20190327
  3. TYVASO [Suspect]
     Active Substance: TREPROSTINIL
     Dosage: UNK,18-54 ?G (3-9 BREATHS), QID

REACTIONS (1)
  - Pulmonary hypertension [Unknown]
